FAERS Safety Report 5481938-3 (Version None)
Quarter: 2007Q4

REPORT INFORMATION
  Report Type: 
  Country: None (occurrence: None)
  Receive Date: 20071010
  Receipt Date: 20071002
  Transmission Date: 20080405
  Serious: Yes (Hospitalization, Other)
  Sender: FDA-Public Use
  Company Number: US-MERCK-0706USA01998

PATIENT
  Age: 63 Year
  Sex: Female

DRUGS (6)
  1. FOSAMAX [Suspect]
     Indication: OSTEOPENIA
     Route: 048
     Dates: start: 20010101, end: 20051001
  2. CORTICOSTEROIDS (UNSPECIFIED) [Concomitant]
     Route: 065
     Dates: start: 19950101, end: 20060101
  3. PROCARDIA XL [Concomitant]
     Indication: HYPERTENSION
     Route: 065
     Dates: start: 19950101
  4. [THERAPY UNSPECIFIED] [Concomitant]
     Indication: HYPERTENSION
     Route: 065
     Dates: start: 19950101
  5. SINGULAIR [Concomitant]
     Indication: ASTHMA
     Route: 065
     Dates: start: 20030101
  6. ADVAIR DISKUS 100/50 [Concomitant]
     Indication: ASTHMA
     Route: 065
     Dates: start: 20030101, end: 20070501

REACTIONS (13)
  - ACUTE SINUSITIS [None]
  - ANXIETY [None]
  - ASTHMA [None]
  - BONE CYST [None]
  - BONE SARCOMA [None]
  - CELLULITIS [None]
  - DEPRESSION [None]
  - FRACTURE [None]
  - GASTROOESOPHAGEAL REFLUX DISEASE [None]
  - OSTEOMYELITIS [None]
  - OSTEONECROSIS [None]
  - TEMPOROMANDIBULAR JOINT SYNDROME [None]
  - TOOTH HYPOPLASIA [None]
